FAERS Safety Report 9038952 (Version 1)
Quarter: 2013Q1

REPORT INFORMATION
  Report Type: Report from Study
  Country: US (occurrence: US)
  Receive Date: 20130129
  Receipt Date: 20130129
  Transmission Date: 20140127
  Serious: No
  Sender: FDA-Public Use
  Company Number: US-ABBOTT-12P-163-0933294-00

PATIENT
  Age: 65 Year
  Sex: Female

DRUGS (13)
  1. HUMIRA 40 MG/0.8 ML PEN [Suspect]
     Indication: CROHN^S DISEASE
     Dosage: 160 MG LOADING DOSE
     Dates: start: 20120504, end: 20120504
  2. HUMIRA 40 MG/0.8 ML PEN [Suspect]
  3. AMLODIPINE [Concomitant]
     Indication: BLOOD PRESSURE
     Dosage: 10MG DAILY
  4. METOPROLOL [Concomitant]
     Indication: BLOOD PRESSURE
     Dosage: 100MG; 1.5 TABLETS DAILY
  5. NEXIUM [Concomitant]
     Indication: GASTROOESOPHAGEAL REFLUX DISEASE
  6. ATORVASTATIN [Concomitant]
     Indication: BLOOD CHOLESTEROL INCREASED
     Dosage: 10MG DAILY
  7. FOSINOPRIL [Concomitant]
     Indication: BLOOD PRESSURE
     Dosage: 40MG DAILY
  8. VESICARE [Concomitant]
     Indication: URINARY INCONTINENCE
     Dosage: 5MG DAILY
  9. VITAMIN D [Concomitant]
     Indication: VITAMIN D DECREASED
  10. MULTIVITAMIN [Concomitant]
     Indication: VITAMIN SUPPLEMENTATION
     Dosage: DAILY
  11. VITAMIN C [Concomitant]
     Indication: VITAMIN SUPPLEMENTATION
     Dosage: 500MG DAILY
  12. PROBIOTIC [Concomitant]
     Indication: PROBIOTIC THERAPY
     Dosage: DAILY
  13. B12 [Concomitant]
     Indication: VITAMIN B12 DECREASED

REACTIONS (3)
  - Skin tightness [Not Recovered/Not Resolved]
  - Pruritus generalised [Not Recovered/Not Resolved]
  - Pruritus generalised [Not Recovered/Not Resolved]
